FAERS Safety Report 7240423-9 (Version None)
Quarter: 2011Q1

REPORT INFORMATION
  Report Type: 
  Country: None (occurrence: None)
  Receive Date: 20110119
  Receipt Date: 20110119
  Transmission Date: 20110831
  Serious: Yes (Other)
  Sender: FDA-Public Use
  Company Number: None

PATIENT
  Age: 49 Year
  Sex: Female
  Weight: 61.2356 kg

DRUGS (2)
  1. RETINOL [Suspect]
     Indication: THERAPEUTIC SKIN CARE TOPICAL
     Dosage: A DAB DAILY -3-4 USES- TOP
     Route: 061
     Dates: start: 20110114, end: 20110116
  2. RETINOL [Suspect]
     Indication: THERAPEUTIC SKIN CARE TOPICAL
     Dosage: A DAB NIGHTLY -1 USE- TOP
     Route: 061
     Dates: start: 20110115, end: 20110115

REACTIONS (4)
  - CHEMICAL BURN OF SKIN [None]
  - APPLICATION SITE PAIN [None]
  - PARAESTHESIA [None]
  - APPLICATION SITE SWELLING [None]
